FAERS Safety Report 8832607 (Version 2)
Quarter: 2012Q4

REPORT INFORMATION
  Report Type: 
  Country: US (occurrence: US)
  Receive Date: 20121010
  Receipt Date: 20121217
  Transmission Date: 20130627
  Serious: Yes (Other)
  Sender: FDA-Public Use
  Company Number: US-PFIZER INC-2012250109

PATIENT
  Age: 62 Year
  Sex: Female

DRUGS (4)
  1. LYRICA [Suspect]
     Indication: FIBROMYALGIA
     Dosage: 50 mg, 3x/day (TID)
     Route: 048
     Dates: start: 20120917, end: 20121008
  2. LEVOTHYROXINE [Concomitant]
     Dosage: 88 ug, 1x/day (daily)
  3. NEXIUM [Concomitant]
     Dosage: 40 mg, 1x/day (daily)
  4. PRAVASTATIN [Concomitant]
     Dosage: 90 mg, 1x/day (daily)

REACTIONS (5)
  - Chest discomfort [Unknown]
  - Amnesia [Unknown]
  - Nausea [Unknown]
  - Dizziness [Recovered/Resolved]
  - Nervousness [Unknown]
